FAERS Safety Report 8794791 (Version 1)
Quarter: 2012Q4

REPORT INFORMATION
  Report Type: 
  Country: US (occurrence: US)
  Receive Date: 20120917
  Receipt Date: 20120917
  Transmission Date: 20130627
  Serious: No
  Sender: FDA-Public Use
  Company Number: US-009507513-1209USA005530

PATIENT

DRUGS (2)
  1. FOLLISTIM [Suspect]
     Indication: OVULATION INDUCTION
     Dosage: 900 IU, UNK
     Dates: start: 20120903
  2. FOLLISTIM [Suspect]
     Indication: INFERTILITY

REACTIONS (2)
  - Overdose [Unknown]
  - Product quality issue [Unknown]
